FAERS Safety Report 7959455-8 (Version None)
Quarter: 2011Q4

REPORT INFORMATION
  Report Type: 
  Country: None (occurrence: None)
  Receive Date: 20111206
  Receipt Date: 20111201
  Transmission Date: 20120403
  Serious: No
  Sender: FDA-Public Use
  Company Number: US-PFIZER INC-2011269822

PATIENT
  Sex: Female

DRUGS (5)
  1. CLONAZEPAM [Suspect]
     Dosage: 3 MG DAILY
  2. CLONAZEPAM [Suspect]
     Dosage: 1 MG DAILY
  3. NARDIL [Suspect]
     Dosage: UNK
     Route: 048
  4. SOMA [Suspect]
     Dosage: UNK
     Route: 048
  5. ZYPREXA [Suspect]
     Dosage: UNK

REACTIONS (4)
  - MUSCULOSKELETAL PAIN [None]
  - MUSCLE SPASMS [None]
  - PARAESTHESIA [None]
  - HYPERSOMNIA [None]
